FAERS Safety Report 6188933-X (Version None)
Quarter: 2009Q2

REPORT INFORMATION
  Report Type: 
  Country: None (occurrence: None)
  Receive Date: 20090513
  Receipt Date: 20090430
  Transmission Date: 20091009
  Serious: Yes (Death, Hospitalization, Disabling, Other)
  Sender: FDA-Public Use
  Company Number: DK-GENENTECH-282678

PATIENT

DRUGS (5)
  1. ACTIVASE [Suspect]
     Indication: MYOCARDIAL INFARCTION
     Dosage: UNK
     Route: 042
  2. ASPIRIN [Suspect]
     Indication: MYOCARDIAL INFARCTION
     Dosage: UNK
     Route: 048
  3. UNFRACTIONATED HEPARIN [Suspect]
     Indication: MYOCARDIAL INFARCTION
     Dosage: UNK
     Route: 042
  4. HEPARIN [Suspect]
     Indication: MYOCARDIAL INFARCTION
     Dosage: UNK
     Route: 042
  5. BETA BLOCKING AGENTS [Suspect]
     Indication: MYOCARDIAL INFARCTION
     Dosage: UNK
     Route: 042

REACTIONS (6)
  - ANGINA PECTORIS [None]
  - CARDIAC DISORDER [None]
  - CEREBROVASCULAR ACCIDENT [None]
  - DEATH [None]
  - DRUG INEFFECTIVE [None]
  - MYOCARDIAL INFARCTION [None]
